FAERS Safety Report 14260389 (Version 1)
Quarter: 2017Q4

REPORT INFORMATION
  Report Type: Spontaneous
  Country: GB (occurrence: GB)
  Receive Date: 20171207
  Receipt Date: 20171207
  Transmission Date: 20180321
  Serious: Yes (Death, Other)
  Sender: FDA-Public Use
  Company Number: GB-MYLANLABS-2017M1076311

PATIENT
  Age: 75 Year
  Sex: Male

DRUGS (5)
  1. PREDNISOLONE. [Concomitant]
     Active Substance: PREDNISOLONE
     Indication: MYCOSIS FUNGOIDES
     Route: 065
  2. INTERFERON ALPHA 1-A [Concomitant]
     Active Substance: INTERFERON ALFA-1A
     Indication: MYCOSIS FUNGOIDES
     Route: 065
  3. CHLORAMBUCIL [Concomitant]
     Active Substance: CHLORAMBUCIL
     Indication: MYCOSIS FUNGOIDES
     Route: 065
  4. BEXAROTENE. [Concomitant]
     Active Substance: BEXAROTENE
     Indication: MYCOSIS FUNGOIDES
     Route: 065
  5. METHOTREXATE. [Suspect]
     Active Substance: METHOTREXATE
     Indication: MYCOSIS FUNGOIDES
     Route: 065

REACTIONS (1)
  - Diffuse large B-cell lymphoma [Fatal]
